FAERS Safety Report 4594807-8 (Version None)
Quarter: 2005Q1

REPORT INFORMATION
  Report Type: 
  Country: None (occurrence: None)
  Receive Date: 20050223
  Receipt Date: 20050210
  Transmission Date: 20050727
  Serious: Yes (Hospitalization)
  Sender: FDA-Public Use
  Company Number: 2005RR-00466

PATIENT
  Age: 69 Year
  Sex: 0

DRUGS (3)
  1. IBUPROFEN [Suspect]
     Dosage: 400 MG, ORAL
     Route: 048
     Dates: end: 20041231
  2. LISINOPRIL [Suspect]
     Dosage: 5 MG, ORAL
     Route: 048
     Dates: end: 20041231
  3. BENDROFLUMETHIAZIDE [Concomitant]

REACTIONS (2)
  - REFLUX OESOPHAGITIS [None]
  - RENAL FAILURE ACUTE [None]
